FAERS Safety Report 23055000 (Version 2)
Quarter: 2023Q4

REPORT INFORMATION
  Report Type: Report from Study
  Country: CR (occurrence: CR)
  Receive Date: 20231011
  Receipt Date: 20231030
  Transmission Date: 20240110
  Serious: Yes (Other)
  Sender: FDA-Public Use
  Company Number: CR-002147023-NVSC2023CR216604

PATIENT
  Sex: Female

DRUGS (3)
  1. EXFORGE HCT [Suspect]
     Active Substance: AMLODIPINE BESYLATE\HYDROCHLOROTHIAZIDE\VALSARTAN
     Indication: Hypertension
     Dosage: 0.5 DOSAGE FORM, QD (1/2 X 10/320/25 MG (MORNING/AFTERNOON)
     Route: 048
     Dates: start: 20230421
  2. EXFORGE HCT [Suspect]
     Active Substance: AMLODIPINE BESYLATE\HYDROCHLOROTHIAZIDE\VALSARTAN
     Dosage: 1 DOSAGE FORM, BID (1 X 5/160/12.5 MG (MORNING/NIGHT) TWICE DAY) STARTED IN 2023)
     Route: 048
     Dates: start: 2023
  3. EXFORGE HCT [Suspect]
     Active Substance: AMLODIPINE BESYLATE\HYDROCHLOROTHIAZIDE\VALSARTAN
     Dosage: UNK 5 IN THE MORNING AND 5 IN THE AFTERNOON
     Route: 065

REACTIONS (4)
  - Blood pressure increased [Recovered/Resolved]
  - Product administration error [Unknown]
  - Wrong technique in product usage process [Unknown]
  - Off label use [Unknown]
